FAERS Safety Report 6244959-9 (Version None)
Quarter: 2009Q2

REPORT INFORMATION
  Report Type: 
  Country: None (occurrence: None)
  Receive Date: 20090625
  Receipt Date: 20090622
  Transmission Date: 20091009
  Serious: Yes (Death, Other)
  Sender: FDA-Public Use
  Company Number: PHHY2009BR24876

PATIENT
  Sex: Female

DRUGS (3)
  1. DIOVAN [Suspect]
     Indication: BLOOD PRESSURE
     Dosage: 1 TABLET (160 MG) A DAY
     Route: 048
     Dates: start: 20060101
  2. DIOVAN [Suspect]
     Dosage: 1 TABLET (80 MG) A DAY
     Route: 048
     Dates: start: 20080101
  3. INSULIN [Concomitant]

REACTIONS (3)
  - CARDIAC ARREST [None]
  - LEG AMPUTATION [None]
  - POOR PERIPHERAL CIRCULATION [None]
